FAERS Safety Report 4356859-X (Version None)
Quarter: 2004Q2

REPORT INFORMATION
  Report Type: 
  Country: None (occurrence: None)
  Receive Date: 20040507
  Receipt Date: 20040421
  Transmission Date: 20050107
  Serious: Yes (Death, Hospitalization, Other)
  Sender: FDA-Public Use
  Company Number: GBS040414697

PATIENT
  Age: 48 Year
  Sex: Male
  Weight: 96 kg

DRUGS (3)
  1. ZYPREXA [Suspect]
     Indication: SCHIZOPHRENIA
     Dosage: 15 MG DAY
     Route: 048
     Dates: start: 20030101
  2. ANADIN [Concomitant]
  3. SERTRALINE [Concomitant]
     Indication: DEPRESSION
     Route: 048

REACTIONS (13)
  - ADHESION [None]
  - ASPIRATION [None]
  - BLOOD ALCOHOL INCREASED [None]
  - CARDIAC DISORDER [None]
  - CEREBRAL ATHEROSCLEROSIS [None]
  - CIRCULATORY COLLAPSE [None]
  - CORONARY ARTERY ATHEROSCLEROSIS [None]
  - DRUG SCREEN POSITIVE [None]
  - DRUG TOXICITY [None]
  - MYOCARDIAL ISCHAEMIA [None]
  - PEPTIC ULCER [None]
  - PERICARDIAL DISEASE [None]
  - SCAR [None]
